FAERS Safety Report 20278785 (Version 6)
Quarter: 2022Q2

REPORT INFORMATION
  Report Type: Report from Study
  Country: US (occurrence: None)
  Receive Date: 20220103
  Receipt Date: 20220516
  Transmission Date: 20220721
  Serious: Yes (Other)
  Sender: FDA-Public Use
  Company Number: US-ROCHE-2987520

PATIENT
  Age: 10 Year
  Sex: Female
  Weight: 49.2 kg

DRUGS (6)
  1. ENTRECTINIB [Suspect]
     Active Substance: ENTRECTINIB
     Indication: Neoplasm
     Dosage: DATE OF DOSE PRIOR TO ADVERSE EVENT: 20/DEC/2021, DOSAGE FOR:F06
     Route: 048
     Dates: start: 20210122, end: 20220210
  2. ENTRECTINIB [Suspect]
     Active Substance: ENTRECTINIB
     Indication: Central nervous system neoplasm
  3. POLYETHYLENE GLYCOL [Concomitant]
     Active Substance: POLYETHYLENE GLYCOL
     Dates: start: 20210112
  4. FERROUS SULFATE [Concomitant]
     Active Substance: FERROUS SULFATE
     Dates: start: 20210128
  5. BENADRYL [Concomitant]
     Active Substance: DIPHENHYDRAMINE HYDROCHLORIDE
  6. HEPARIN SODIUM [Concomitant]
     Active Substance: HEPARIN SODIUM

REACTIONS (3)
  - Ulna fracture [Recovered/Resolved with Sequelae]
  - Foot fracture [Recovered/Resolved with Sequelae]
  - Tibia fracture [Recovered/Resolved with Sequelae]

NARRATIVE: CASE EVENT DATE: 20211220
